FAERS Safety Report 9028946 (Version 1)
Quarter: 2013Q1

REPORT INFORMATION
  Report Type: Spontaneous
  Country: FR (occurrence: FR)
  Receive Date: 20130124
  Receipt Date: 20130124
  Transmission Date: 20140127
  Serious: Yes (Death)
  Sender: FDA-Public Use
  Company Number: FR-SANOFI-AVENTIS-2013SA004594

PATIENT
  Age: 87 Year
  Sex: Male

DRUGS (13)
  1. LASILIX [Suspect]
     Indication: PRODUCT USED FOR UNKNOWN INDICATION
     Route: 048
  2. LASILIX [Suspect]
     Indication: PRODUCT USED FOR UNKNOWN INDICATION
     Route: 048
     Dates: start: 20121218
  3. LASILIX [Suspect]
     Indication: PRODUCT USED FOR UNKNOWN INDICATION
     Route: 048
     Dates: start: 20121221
  4. LASILIX [Suspect]
     Indication: PRODUCT USED FOR UNKNOWN INDICATION
     Route: 048
     Dates: start: 20121225
  5. PERINDOPRIL [Suspect]
     Indication: PRODUCT USED FOR UNKNOWN INDICATION
     Dosage: STRENGTH: 2.5 MG
     Route: 048
     Dates: start: 20121217, end: 20121221
  6. ESIDREX [Suspect]
     Indication: PRODUCT USED FOR UNKNOWN INDICATION
     Dosage: STRENGTH: 25 MG
     Route: 048
     Dates: start: 20121202, end: 20121221
  7. CORDARONE [Concomitant]
     Dosage: STRENGTH: 200 MG
     Route: 048
  8. TAHOR [Concomitant]
     Dosage: STRENGTH: 10 MG
     Route: 048
  9. LEVOTHYROX [Concomitant]
     Dosage: STRENGTH: 50 MCG
     Route: 048
  10. XATRAL [Concomitant]
     Dosage: STRENGTH: 10 MG
     Route: 048
  11. AVODART [Concomitant]
     Dosage: STRENGTH: 20 MG
     Route: 048
  12. PREVISCAN [Concomitant]
     Dosage: STRENGTH: 20 MG
     Route: 048
     Dates: end: 20121221
  13. DIFFU K [Concomitant]
     Route: 048

REACTIONS (6)
  - International normalised ratio increased [Fatal]
  - Anuria [Fatal]
  - Renal failure [Fatal]
  - Hypotension [Fatal]
  - Cardiogenic shock [None]
  - Hepatojugular reflux [None]
